FAERS Safety Report 13523533 (Version 2)
Quarter: 2017Q3

REPORT INFORMATION
  Report Type: Spontaneous
  Country: US (occurrence: US)
  Receive Date: 20170508
  Receipt Date: 20170810
  Transmission Date: 20171127
  Serious: No
  Sender: FDA-Public Use
  Company Number: US-VIFOR (INTERNATIONAL) INC.-VIT-2017-04389

PATIENT
  Age: 56 Year
  Sex: Female

DRUGS (16)
  1. OMEPRAZOLE. [Concomitant]
     Active Substance: OMEPRAZOLE
  2. TYLENOL [Concomitant]
     Active Substance: ACETAMINOPHEN
  3. FERROUS SULFATE. [Concomitant]
     Active Substance: FERROUS SULFATE
  4. LEVOCETIRIZINE DIHYDROCHLORIDE. [Concomitant]
     Active Substance: LEVOCETIRIZINE DIHYDROCHLORIDE
  5. GLIMEPIRIDE. [Concomitant]
     Active Substance: GLIMEPIRIDE
  6. METAMUCIL [Concomitant]
     Active Substance: PLANTAGO SEED
  7. TRADJENTA [Concomitant]
     Active Substance: LINAGLIPTIN
  8. VICOPROFEN [Concomitant]
     Active Substance: HYDROCODONE BITARTRATE\IBUPROFEN
  9. VITAMINS NOS [Concomitant]
     Active Substance: VITAMINS
  10. MAGNESIUM OXIDE. [Concomitant]
     Active Substance: MAGNESIUM OXIDE
  11. VELTASSA [Suspect]
     Active Substance: PATIROMER
     Indication: HYPERKALAEMIA
     Route: 048
     Dates: start: 20170419
  12. LANTUS [Concomitant]
     Active Substance: INSULIN GLARGINE
  13. FUROSEMIDE. [Concomitant]
     Active Substance: FUROSEMIDE
  14. ALDACTONE [Concomitant]
     Active Substance: SPIRONOLACTONE
  15. ZINC. [Concomitant]
     Active Substance: ZINC
  16. AMOXICILLIN. [Concomitant]
     Active Substance: AMOXICILLIN

REACTIONS (4)
  - Inappropriate schedule of drug administration [Unknown]
  - Musculoskeletal stiffness [Unknown]
  - Dental discomfort [Unknown]
  - Arthropathy [Unknown]

NARRATIVE: CASE EVENT DATE: 2017
